FAERS Safety Report 5899042-9 (Version None)
Quarter: 2008Q3

REPORT INFORMATION
  Report Type: 
  Country: None (occurrence: None)
  Receive Date: 20080925
  Receipt Date: 20080915
  Transmission Date: 20090109
  Serious: Yes (Other)
  Sender: FDA-Public Use
  Company Number: DE-ELI_LILLY_AND_COMPANY-DE200806000816

PATIENT
  Sex: Female

DRUGS (2)
  1. ZYPREXA [Suspect]
     Indication: DEPRESSION
     Dosage: 2.5 MG, DAILY (1/D)
     Route: 048
     Dates: start: 20000701
  2. CIPRO [Concomitant]

REACTIONS (12)
  - CHEMICAL POISONING [None]
  - DRUG INTERACTION [None]
  - FATIGUE [None]
  - FUNGAEMIA [None]
  - FUNGAL INFECTION [None]
  - MULTIPLE ALLERGIES [None]
  - NEOPLASM MALIGNANT [None]
  - RASH [None]
  - RENAL IMPAIRMENT [None]
  - RESTLESSNESS [None]
  - SLEEP DISORDER [None]
  - URTICARIA [None]
